FAERS Safety Report 7486014-6 (Version None)
Quarter: 2011Q2

REPORT INFORMATION
  Report Type: 
  Country: None (occurrence: None)
  Receive Date: 20110517
  Receipt Date: 20110511
  Transmission Date: 20111010
  Serious: Yes (Other)
  Sender: FDA-Public Use
  Company Number: CHPA2011DE06669

PATIENT
  Sex: Male

DRUGS (1)
  1. OTRIVIN [Suspect]
     Dosage: UNK, UNK
     Route: 045
     Dates: start: 19960101

REACTIONS (2)
  - INCORRECT DRUG ADMINISTRATION DURATION [None]
  - DRUG DEPENDENCE [None]
